FAERS Safety Report 6303699-8 (Version None)
Quarter: 2009Q3

REPORT INFORMATION
  Report Type: 
  Country: None (occurrence: None)
  Receive Date: 20090810
  Receipt Date: 20090729
  Transmission Date: 20100115
  Serious: Yes (Hospitalization)
  Sender: FDA-Public Use
  Company Number: DE-GILEAD-E2B_00000284

PATIENT
  Sex: Female

DRUGS (20)
  1. AMBRISENTAN [Suspect]
     Indication: PULMONARY ARTERIAL HYPERTENSION
     Dosage: 5MG PER DAY
     Route: 048
     Dates: start: 20081204, end: 20090213
  2. BISOPMOLOL [Concomitant]
  3. HEPARIN [Concomitant]
     Dates: start: 20090206, end: 20090206
  4. HEPARIN [Concomitant]
     Dates: start: 20090205, end: 20090205
  5. HYDROCHLOROTHIAZIDE [Concomitant]
     Dates: start: 20090205
  6. BEROTEC [Concomitant]
     Indication: ASTHMA
     Route: 055
  7. SALBUTAMOL [Concomitant]
     Indication: ASTHMA
     Route: 055
  8. MARCUMAR [Concomitant]
     Indication: THROMBOSIS PROPHYLAXIS
     Route: 048
  9. AMLODIPINE [Concomitant]
     Indication: HYPERTENSION
     Route: 048
  10. ALLOPURINOL [Concomitant]
     Indication: GOUT
     Route: 048
     Dates: end: 20090205
  11. TORSEMIDE [Concomitant]
     Indication: DIURETIC THERAPY
     Dates: end: 20090205
  12. NOVODIGAL [Concomitant]
     Indication: ARRHYTHMIA
     Route: 048
     Dates: end: 20090212
  13. FRUSEMIDE [Concomitant]
  14. ILOPROST [Concomitant]
  15. RAMIPRIL [Concomitant]
  16. LACTULOSE [Concomitant]
  17. NULYTELY [Concomitant]
  18. CIPROFLOXACIN HCL [Concomitant]
  19. DIGITOXIN [Concomitant]
  20. SPIRONOLACTONE [Concomitant]

REACTIONS (1)
  - RIGHT VENTRICULAR FAILURE [None]
